FAERS Safety Report 4665355-1 (Version None)
Quarter: 2005Q2

REPORT INFORMATION
  Report Type: 
  Country: None (occurrence: None)
  Receive Date: 20050517
  Receipt Date: 20050414
  Transmission Date: 20051028
  Serious: No
  Sender: FDA-Public Use
  Company Number: S05-USA-01919-01

PATIENT
  Age: 75 Year
  Sex: Female

DRUGS (4)
  1. NAMENDA [Suspect]
     Indication: AMNESIA
     Dosage: 5 MG QD PO
     Route: 048
     Dates: start: 20050414
  2. HIGH BLOOD PRESSURE MEDICATION (NOS) [Concomitant]
  3. ESTROGEN [Concomitant]
  4. ARTHRITIS MEDICATION (NOS) [Concomitant]

REACTIONS (2)
  - DIZZINESS [None]
  - DYSPEPSIA [None]
